FAERS Safety Report 8953734 (Version 1)
Quarter: 2012Q4

REPORT INFORMATION
  Report Type: 
  Country: US (occurrence: US)
  Receive Date: 20121206
  Receipt Date: 20121206
  Transmission Date: 20130627
  Serious: Yes (Hospitalization)
  Sender: FDA-Public Use
  Company Number: US-PFIZER INC-2012307543

PATIENT
  Age: 50 Year
  Sex: Female
  Weight: 65.76 kg

DRUGS (5)
  1. NEURONTIN [Suspect]
     Indication: NEUROPATHY
     Dosage: 100 mg, 1x/day
     Route: 048
     Dates: start: 201202
  2. NEURONTIN [Suspect]
     Dosage: 800 mg, 3x/day
     Route: 048
  3. METHOCARBAMOL [Concomitant]
     Indication: MUSCLE DISORDER
     Dosage: UNK
  4. ASPIRIN [Concomitant]
     Dosage: UNK, 1x/day
  5. VITAMIN B [Concomitant]
     Dosage: UNK

REACTIONS (3)
  - Brain neoplasm [Not Recovered/Not Resolved]
  - Headache [Not Recovered/Not Resolved]
  - Panic attack [Not Recovered/Not Resolved]
